FAERS Safety Report 20009620 (Version 1)
Quarter: 2021Q4

REPORT INFORMATION
  Report Type: Spontaneous
  Country: US (occurrence: US)
  Receive Date: 20211028
  Receipt Date: 20211028
  Transmission Date: 20220304
  Serious: Yes (Other)
  Sender: FDA-Public Use
  Company Number: None

PATIENT
  Age: 79 Year
  Sex: Female
  Weight: 69.75 kg

DRUGS (1)
  1. LABETALOL [Suspect]
     Active Substance: LABETALOL\LABETALOL HYDROCHLORIDE
     Indication: Hypertension
     Dosage: ?          QUANTITY:1 TABLET(S);
     Route: 048
     Dates: start: 20211015, end: 20211027

REACTIONS (3)
  - Blood pressure inadequately controlled [None]
  - Skin tightness [None]
  - Product quality issue [None]

NARRATIVE: CASE EVENT DATE: 20211027
